FAERS Safety Report 11328980 (Version 1)
Quarter: 2015Q3

REPORT INFORMATION
  Report Type: Spontaneous
  Country: CH (occurrence: CH)
  Receive Date: 20150802
  Receipt Date: 20150802
  Transmission Date: 20151125
  Serious: Yes (Other)
  Sender: FDA-Public Use
  Company Number: CH-TEVA-582552ISR

PATIENT
  Age: 75 Year
  Sex: Male
  Weight: 85 kg

DRUGS (8)
  1. CALCIUM-D3 [Concomitant]
     Dosage: 1 DOSAGE FORMS DAILY; 1 DF= 1000MG CALCIUM AND 880 UI CHOLECALCIFEROL. LONGTERM, 1000/880 MG 1-0-0-0
     Route: 065
  2. PARACETAMOL [Concomitant]
     Active Substance: ACETAMINOPHEN
     Dosage: 3000 MILLIGRAM DAILY; LONGTERM, 1000MG 1-1-1-0
     Route: 065
  3. CITALOPRAM [Suspect]
     Active Substance: CITALOPRAM HYDROBROMIDE
     Dosage: 10 MILLIGRAM DAILY; LONGTERM, 10MG 1-0-0-0
     Route: 065
  4. LORAZEPAM. [Concomitant]
     Active Substance: LORAZEPAM
     Dosage: 5 MILLIGRAM DAILY; LONGTERM, 2,5MG 1-0-0-1
     Route: 065
  5. METFORMIN [Suspect]
     Active Substance: METFORMIN HYDROCHLORIDE
     Dosage: 2000 MILLIGRAM DAILY; LONGTERM, 1000MG 1-0-1-0
     Route: 065
  6. AMLODIPIN [Suspect]
     Active Substance: AMLODIPINE BESYLATE
     Dosage: 10 MILLIGRAM DAILY; LONGTERM, 10MG 1-0-0-0
     Route: 065
  7. QUETIAPIN [Suspect]
     Active Substance: QUETIAPINE
     Dosage: 37.5 MILLIGRAM DAILY; LONGTERM, 25MG 1/2-0-1-0
     Route: 065
  8. HYDROCHLOROTHIAZIDE AND LISINOPRIL [Suspect]
     Active Substance: HYDROCHLOROTHIAZIDE\LISINOPRIL
     Dosage: .5 DOSAGE FORMS DAILY; 1 DF= 10MG LISINOPRIL AND 12,5 MG HYDROCHLOROTHIAZIDE. LONGTERM, 1/2 DF-0-0-0
     Route: 065

REACTIONS (5)
  - Activities of daily living impaired [Unknown]
  - Renal failure [Unknown]
  - Balance disorder [Unknown]
  - Fall [Unknown]
  - Gait disturbance [Unknown]
